FAERS Safety Report 9530608 (Version 3)
Quarter: 2013Q4

REPORT INFORMATION
  Report Type: Report from Study
  Country: US (occurrence: US)
  Receive Date: 20130918
  Receipt Date: 20131011
  Transmission Date: 20140711
  Serious: Yes (Death)
  Sender: FDA-Public Use
  Company Number: US-ROCHE-1277539

PATIENT
  Age: 28 Year
  Sex: Female
  Weight: 78.54 kg

DRUGS (10)
  1. AVASTIN [Suspect]
     Indication: GLIOBLASTOMA
     Route: 065
     Dates: start: 20120403
  2. KEPPRA [Concomitant]
     Dosage: TWICE PER DAY
     Route: 065
  3. HYDROCHLOROTHIAZIDE [Concomitant]
     Route: 065
  4. HYDROCORTISONE [Concomitant]
     Route: 065
  5. SYNTHROID [Concomitant]
  6. LOSARTAN [Concomitant]
  7. FAMOTIDINE [Concomitant]
  8. ZOFRAN [Concomitant]
  9. TRIMETHOPRIM [Concomitant]
  10. VERAPAMIL [Concomitant]

REACTIONS (9)
  - Brain neoplasm [Fatal]
  - Somnolence [Unknown]
  - Appetite disorder [Unknown]
  - Weight increased [Unknown]
  - Hallucination [Unknown]
  - Aggression [Unknown]
  - Agitation [Unknown]
  - Bradykinesia [Unknown]
  - Nuclear magnetic resonance imaging abnormal [Unknown]
